FAERS Safety Report 7970266 (Version 4)
Quarter: 2013Q4

REPORT INFORMATION
  Report Type: Spontaneous
  Country: US (occurrence: US)
  Receive Date: 20110601
  Receipt Date: 20131030
  Transmission Date: 20140711
  Serious: Yes (Life-Threatening, Hospitalization, Disabling)
  Sender: FDA-Public Use
  Company Number: US-B.I. PHARMACEUTICALS,INC./RIDGEFIELD-2011-BP-13845BP

PATIENT
  Age: 67 Year
  Sex: Male

DRUGS (6)
  1. PRADAXA [Suspect]
     Indication: ATRIAL FIBRILLATION
     Dosage: 300 MG
  2. ASPIRIN [Suspect]
     Indication: CARDIOVASCULAR EVENT PROPHYLAXIS
     Dosage: 81 MG
  3. WARFARIN [Suspect]
     Indication: ANTICOAGULANT THERAPY
  4. SOTALOL [Concomitant]
  5. OMEPRAZOLE [Concomitant]
  6. LISINOPRIL [Concomitant]

REACTIONS (4)
  - Renal haemorrhage [Not Recovered/Not Resolved]
  - Haematuria [Recovered/Resolved]
  - Renal tubular necrosis [Not Recovered/Not Resolved]
  - Renal failure acute [Recovered/Resolved]
